FAERS Safety Report 19377221 (Version 1)
Quarter: 2021Q2

REPORT INFORMATION
  Report Type: Report from Study
  Country: IT (occurrence: IT)
  Receive Date: 20210605
  Receipt Date: 20210605
  Transmission Date: 20210717
  Serious: Yes (Hospitalization)
  Sender: FDA-Public Use
  Company Number: IT-ACCORD-227053

PATIENT
  Age: 54 Year
  Sex: Female
  Weight: 123 kg

DRUGS (2)
  1. OXALIPLATIN. [Suspect]
     Active Substance: OXALIPLATIN
     Indication: COLON NEOPLASM
     Route: 042
     Dates: start: 20201221, end: 20210406
  2. CALCIUM LEVOFOLINATE TEVA [Concomitant]
     Active Substance: LEVOLEUCOVORIN CALCIUM

REACTIONS (5)
  - Abdominal pain [Recovered/Resolved]
  - Hypotension [Recovered/Resolved]
  - Dyspnoea [Recovered/Resolved]
  - Hyperhidrosis [Recovered/Resolved]
  - Presyncope [Recovered/Resolved]

NARRATIVE: CASE EVENT DATE: 20210406
